FAERS Safety Report 5406615-6 (Version None)
Quarter: 2007Q3

REPORT INFORMATION
  Report Type: 
  Country: None (occurrence: None)
  Receive Date: 20070806
  Receipt Date: 20070727
  Transmission Date: 20080115
  Serious: No
  Sender: FDA-Public Use
  Company Number: JP-MERCK-0706USA01538

PATIENT
  Age: 81 Year
  Sex: Female

DRUGS (4)
  1. HYZAAR [Suspect]
     Indication: HYPERTENSION
     Route: 048
     Dates: start: 20070521, end: 20070605
  2. ALDACTONE [Concomitant]
     Route: 048
  3. ALLEGRA [Concomitant]
     Route: 048
  4. BEZAFIBRATE [Concomitant]
     Route: 048

REACTIONS (1)
  - DRUG ERUPTION [None]
